FAERS Safety Report 9232649 (Version 1)
Quarter: 2013Q1

REPORT INFORMATION
  Report Type: Spontaneous
  Country: US (occurrence: None)
  Receive Date: 20121031
  Receipt Date: 20121031
  Transmission Date: 20140127
  Serious: No
  Sender: FDA-Public Use
  Company Number: PHEH2012US013177

PATIENT
  Age: 41 Year
  Sex: Female
  Weight: 63 kg

DRUGS (1)
  1. GILENYA (FTY) CAPSULE, 0.5MG [Suspect]
     Indication: MULTIPLE SCLEROSIS
     Dosage: 1 DF, QD, ORAL
     Route: 048
     Dates: start: 20120621, end: 20120629

REACTIONS (8)
  - Dysphagia [None]
  - Palpitations [None]
  - Erythema [None]
  - Chest discomfort [None]
  - Extrasystoles [None]
  - Chest pain [None]
  - Flushing [None]
  - Heart rate decreased [None]
